FAERS Safety Report 20431373 (Version 1)
Quarter: 2022Q1

REPORT INFORMATION
  Report Type: Other
  Country: None (occurrence: JP)
  Receive Date: 20220204
  Receipt Date: 20220204
  Transmission Date: 20220423
  Serious: Yes (Hospitalization)
  Sender: FDA-Public Use
  Company Number: JP-B.Braun Medical Inc.-2124621

PATIENT
  Age: 83 Year
  Sex: Male

DRUGS (1)
  1. CEFTRIAXONE SODIUM [Suspect]
     Active Substance: CEFTRIAXONE SODIUM

REACTIONS (2)
  - Acute generalised exanthematous pustulosis [Recovering/Resolving]
  - Pustular psoriasis [Recovering/Resolving]
